FAERS Safety Report 6704412-2 (Version None)
Quarter: 2010Q2

REPORT INFORMATION
  Report Type: 
  Country: None (occurrence: None)
  Receive Date: 20100430
  Receipt Date: 20100426
  Transmission Date: 20101027
  Serious: Yes (Other)
  Sender: FDA-Public Use
  Company Number: JP-BRISTOL-MYERS SQUIBB COMPANY-15077829

PATIENT
  Age: 53 Year
  Sex: Female

DRUGS (2)
  1. PACLITAXEL [Suspect]
     Indication: ENDOMETRIAL CANCER
     Dates: start: 20051201, end: 20060401
  2. CARBOPLATIN [Suspect]
     Indication: ENDOMETRIAL CANCER
     Dates: start: 20051201, end: 20060401

REACTIONS (1)
  - SCLERODERMA [None]
